FAERS Safety Report 22191577 (Version 4)
Quarter: 2023Q4

REPORT INFORMATION
  Report Type: Spontaneous
  Country: FR (occurrence: FR)
  Receive Date: 20230410
  Receipt Date: 20231027
  Transmission Date: 20240110
  Serious: Yes (Hospitalization)
  Sender: FDA-Public Use
  Company Number: None

PATIENT
  Age: 44 Year
  Sex: Female
  Weight: 66 kg

DRUGS (4)
  1. HALDOL [Interacting]
     Active Substance: HALOPERIDOL
     Indication: Schizophrenia
     Route: 048
     Dates: start: 20200728, end: 20230311
  2. FLUVOXAMINE MALEATE [Interacting]
     Active Substance: FLUVOXAMINE MALEATE
     Indication: Depression
     Route: 048
     Dates: start: 20230127, end: 20230311
  3. TERALITHE [Interacting]
     Active Substance: LITHIUM CARBONATE
     Indication: Depression
     Dosage: 400 MG PROLONGED-RELEASE TABLET SCORED
     Route: 048
     Dates: start: 20221130, end: 20230311
  4. CLOZAPINE [Interacting]
     Active Substance: CLOZAPINE
     Indication: Schizophrenia
     Route: 048
     Dates: start: 20221012, end: 20230311

REACTIONS (6)
  - Extrapyramidal disorder [Recovered/Resolved]
  - Tonic clonic movements [Recovered/Resolved]
  - Toxic encephalopathy [Recovered/Resolved]
  - Drug interaction [Recovered/Resolved]
  - Drug interaction [Recovered/Resolved]
  - Overdose [Recovered/Resolved]

NARRATIVE: CASE EVENT DATE: 20230311
